FAERS Safety Report 4614070-9 (Version None)
Quarter: 2005Q1

REPORT INFORMATION
  Report Type: 
  Country: None (occurrence: None)
  Receive Date: 20050316
  Receipt Date: 20050309
  Transmission Date: 20050727
  Serious: Yes (Death, Hospitalization)
  Sender: FDA-Public Use
  Company Number: 2005AP00453

PATIENT
  Sex: Male

DRUGS (3)
  1. SEROQUEL [Suspect]
     Dosage: 1600 MG DAILY PO
     Route: 048
  2. SEROQUEL [Suspect]
     Dosage: 400 MG DAILY PO
     Route: 048
  3. BENZODIAZEPINE [Concomitant]

REACTIONS (8)
  - AGGRESSION [None]
  - AGITATION [None]
  - ASPIRATION [None]
  - DELIRIUM [None]
  - NEUTROPENIA [None]
  - RESPIRATORY FAILURE [None]
  - RESPIRATORY TRACT INFECTION [None]
  - URINARY TRACT INFECTION [None]
